FAERS Safety Report 9206230 (Version 2)
Quarter: 2013Q2

REPORT INFORMATION
  Report Type: Spontaneous
  Country: US (occurrence: US)
  Receive Date: 20130403
  Receipt Date: 20130510
  Transmission Date: 20140414
  Serious: No
  Sender: FDA-Public Use
  Company Number: US-PFIZER INC-2013100860

PATIENT
  Age: 50 Year
  Sex: Male
  Weight: 99.09 kg

DRUGS (8)
  1. LEUCOVORIN [Suspect]
     Indication: COLON CANCER
     Dosage: 400 UNIT(S); EVERY CYCLE
     Route: 042
     Dates: start: 20130130, end: 20130130
  2. IRINOTECAN HCL [Suspect]
     Indication: COLON CANCER
     Dosage: 400 UNIT(S); EVERY CYCLE
     Route: 042
     Dates: start: 20130130, end: 20130130
  3. ZALTRAP [Suspect]
     Indication: COLON CANCER
     Dosage: 400 MG, CYCLIC
     Route: 042
     Dates: start: 20130130, end: 20130130
  4. ZALTRAP [Suspect]
     Dosage: 400 MG, CYCLIC
     Route: 042
     Dates: start: 20130213, end: 20130213
  5. ZALTRAP [Suspect]
     Dosage: 400 MG, CYCLIC
     Route: 042
     Dates: start: 20130227, end: 20130227
  6. EMEND [Concomitant]
     Dosage: UNK
     Dates: start: 20130130
  7. DEXAMETHASONE [Concomitant]
     Dosage: UNK
     Dates: start: 20130130
  8. ALOXI [Concomitant]
     Dosage: UNK
     Dates: start: 20130130

REACTIONS (7)
  - Hypersensitivity [Recovered/Resolved]
  - Flushing [Recovered/Resolved]
  - Chest discomfort [Recovered/Resolved]
  - Hypersensitivity [Recovered/Resolved]
  - Flushing [Recovered/Resolved with Sequelae]
  - Chest discomfort [Recovered/Resolved with Sequelae]
  - Back pain [Recovered/Resolved with Sequelae]
